FAERS Safety Report 5108959-4 (Version None)
Quarter: 2006Q3

REPORT INFORMATION
  Report Type: 
  Country: None (occurrence: None)
  Receive Date: 20060915
  Receipt Date: 20060906
  Transmission Date: 20061208
  Serious: Yes (Hospitalization, Other)
  Sender: FDA-Public Use
  Company Number: HQWYE986206JUN06

PATIENT
  Age: 20 Year
  Sex: Female
  Weight: 66 kg

DRUGS (14)
  1. CYCLOSPORINE [Suspect]
     Indication: PROPHYLAXIS AGAINST TRANSPLANT REJECTION
     Dosage: SEE IMAGE, ORAL
     Route: 048
     Dates: start: 20050911, end: 20060412
  2. CYCLOSPORINE [Suspect]
     Indication: PROPHYLAXIS AGAINST TRANSPLANT REJECTION
     Dosage: SEE IMAGE, ORAL
     Route: 048
     Dates: start: 20060413, end: 20060618
  3. CYCLOSPORINE [Suspect]
     Indication: PROPHYLAXIS AGAINST TRANSPLANT REJECTION
     Dosage: SEE IMAGE, ORAL
     Route: 048
     Dates: start: 20060101
  4. CELLCEPT [Suspect]
     Indication: PROPHYLAXIS AGAINST TRANSPLANT REJECTION
     Dosage: 1000 MG 2X PER 1 DAY, ORAL
     Route: 048
     Dates: start: 20060225
  5. PREDNISONE TAB [Suspect]
     Indication: PROPHYLAXIS AGAINST TRANSPLANT REJECTION
     Dosage: 10 MG 1X PER 1 DAY, ORAL
     Route: 048
     Dates: start: 20060303
  6. YASMIN [Concomitant]
  7. TOPROL-XL [Concomitant]
  8. POTASSIUM CHLORIDE [Concomitant]
  9. PHENERGAN (PROMETHAZINE HYDROCHLORIDE) [Concomitant]
  10. TYLENOL PM (DIPHENHYDRAMINE/PARACETAMOL) [Concomitant]
  11. CLEOCIN T [Concomitant]
  12. PENTAMIDINE (PENTAMIDINE) [Concomitant]
  13. EFLORNITHINE (EFLORNITHINE) [Concomitant]
  14. AMBIEN [Concomitant]

REACTIONS (11)
  - BLOOD UREA INCREASED [None]
  - CONDITION AGGRAVATED [None]
  - ESCHERICHIA URINARY TRACT INFECTION [None]
  - HEART RATE INCREASED [None]
  - KLEBSIELLA INFECTION [None]
  - MIGRAINE [None]
  - NAUSEA [None]
  - PYELONEPHRITIS [None]
  - PYREXIA [None]
  - RESPIRATORY RATE INCREASED [None]
  - VOMITING [None]
